FAERS Safety Report 16689385 (Version 1)
Quarter: 2019Q3

REPORT INFORMATION
  Report Type: Spontaneous
  Country: DE (occurrence: DE)
  Receive Date: 20190809
  Receipt Date: 20190809
  Transmission Date: 20191004
  Serious: Yes (Other)
  Sender: FDA-Public Use
  Company Number: DE-ASTRAZENECA-2019SF11781

PATIENT
  Age: 30 Year
  Sex: Female

DRUGS (4)
  1. MEDICINAL CANNABIS [Concomitant]
  2. ERIBULIN [Concomitant]
     Active Substance: ERIBULIN
  3. DURVALUMAB. [Suspect]
     Active Substance: DURVALUMAB
     Indication: TRIPLE NEGATIVE BREAST CANCER
     Route: 042
  4. OLAPARIB. [Concomitant]
     Active Substance: OLAPARIB

REACTIONS (5)
  - Spondylitis [Unknown]
  - Off label use [Unknown]
  - Sacroiliitis [Unknown]
  - Fatigue [Unknown]
  - Drug ineffective for unapproved indication [Unknown]
